FAERS Safety Report 5491376-5 (Version None)
Quarter: 2007Q4

REPORT INFORMATION
  Report Type: 
  Country: None (occurrence: None)
  Receive Date: 20071017
  Receipt Date: 20071002
  Transmission Date: 20080405
  Serious: Yes (Hospitalization)
  Sender: FDA-Public Use
  Company Number: 105485

PATIENT
  Age: 66 Year
  Sex: Female

DRUGS (3)
  1. DAIVOBET [Suspect]
     Indication: PSORIASIS
     Dosage: PROBABLY USED MORE THAN 100G PER WEEK
     Dates: start: 20030101, end: 20030101
  2. DAIVONEX (CALCIPOTRIOL) [Concomitant]
  3. ATARAX [Concomitant]

REACTIONS (2)
  - ERYTHRODERMIC PSORIASIS [None]
  - REBOUND EFFECT [None]
